FAERS Safety Report 11568786 (Version 1)
Quarter: 2015Q3

REPORT INFORMATION
  Report Type: Spontaneous
  Country: US (occurrence: None)
  Receive Date: 20150928
  Receipt Date: 20150928
  Transmission Date: 20151125
  Serious: Yes (Death)
  Sender: FDA-Public Use
  Company Number: None

PATIENT
  Age: 57 Year
  Sex: Female

DRUGS (10)
  1. OCTREOTIDE. [Suspect]
     Active Substance: OCTREOTIDE
     Indication: NAUSEA
     Route: 058
     Dates: start: 20150804, end: 20150915
  2. COLACE [Concomitant]
     Active Substance: DOCUSATE SODIUM
  3. OCTREOTIDE. [Suspect]
     Active Substance: OCTREOTIDE
     Indication: VOMITING
     Route: 058
     Dates: start: 20150804, end: 20150915
  4. SYNTHROID [Concomitant]
     Active Substance: LEVOTHYROXINE SODIUM
  5. OCTREOTIDE. [Suspect]
     Active Substance: OCTREOTIDE
     Indication: COLON CANCER
     Route: 058
     Dates: start: 20150804, end: 20150915
  6. COMPAZINE [Concomitant]
     Active Substance: PROCHLORPERAZINE MALEATE
  7. CITALOPRAM [Concomitant]
     Active Substance: CITALOPRAM HYDROBROMIDE
  8. ALPRAZOLAM. [Concomitant]
     Active Substance: ALPRAZOLAM
  9. MORPHINE SUL [Concomitant]
  10. PROMETHAZINE [Concomitant]
     Active Substance: PROMETHAZINE\PROMETHAZINE HYDROCHLORIDE

REACTIONS (1)
  - Respiratory failure [None]

NARRATIVE: CASE EVENT DATE: 20150915
